FAERS Safety Report 19730041 (Version 1)
Quarter: 2021Q3

REPORT INFORMATION
  Report Type: Spontaneous
  Country: DE (occurrence: DE)
  Receive Date: 20210820
  Receipt Date: 20210820
  Transmission Date: 20211014
  Serious: Yes (Death, Hospitalization, Other)
  Sender: FDA-Public Use
  Company Number: DE-TEVA-2021-DE-1942929

PATIENT
  Age: 68 Year
  Sex: Male
  Weight: 88 kg

DRUGS (5)
  1. IBUPROFEN. [Suspect]
     Active Substance: IBUPROFEN
     Dosage: 800 MG, AS NEEDED
     Route: 065
  2. PIRFENIDON [Concomitant]
     Dosage: 3204 MILLIGRAM DAILY; 801 MG, 1?1?1?1
  3. DIGITOXIN [Concomitant]
     Active Substance: DIGITOXIN
     Dosage: .1 MILLIGRAM DAILY; 1?0?0?0
  4. TORASEMID [Concomitant]
     Active Substance: TORSEMIDE
     Dosage: 50 MILLIGRAM DAILY; 1?0?0?0
  5. SPIRONOLACTON [Concomitant]
     Active Substance: SPIRONOLACTONE
     Dosage: 100 MILLIGRAM DAILY; 1?0?0?0

REACTIONS (11)
  - Haematochezia [Unknown]
  - Cough [Unknown]
  - Diarrhoea [Unknown]
  - Dysuria [Unknown]
  - General physical health deterioration [Unknown]
  - Abdominal distension [Unknown]
  - Dyspnoea [Unknown]
  - Pulmonary fibrosis [Unknown]
  - Anaemia [Unknown]
  - Atrial fibrillation [Unknown]
  - Abdominal pain [Unknown]
